FAERS Safety Report 12727604 (Version 8)
Quarter: 2018Q4

REPORT INFORMATION
  Report Type: Spontaneous
  Country: US (occurrence: US)
  Receive Date: 20160909
  Receipt Date: 20181221
  Transmission Date: 20190204
  Serious: Yes (Other)
  Sender: FDA-Public Use
  Company Number: US-PFIZER INC-2016421404

PATIENT
  Age: 70 Year
  Sex: Female
  Weight: 78 kg

DRUGS (36)
  1. REFRESH PLUS [Concomitant]
     Active Substance: CARBOXYMETHYLCELLULOSE SODIUM
     Dosage: UNK, AS NEEDED (4XADAY AND AS NEEDED RT AND LEFT EYE)
  2. TYLENOL [Concomitant]
     Active Substance: ACETAMINOPHEN
     Dosage: 325 MG, 2X/DAY
  3. LEVOTHYROXINE. [Concomitant]
     Active Substance: LEVOTHYROXINE
     Dosage: 50 UG, UNK
  4. AMLODIPINE BESYLATE. [Concomitant]
     Active Substance: AMLODIPINE BESYLATE
     Dosage: 5 MG, UNK
  5. CELEBREX [Suspect]
     Active Substance: CELECOXIB
     Indication: NECK PAIN
  6. TRAMADOL HCL [Concomitant]
     Active Substance: TRAMADOL HYDROCHLORIDE
     Indication: PAIN
     Dosage: 50 MG, AS NEEDED (3XA DAY)
  7. NYSTATIN. [Concomitant]
     Active Substance: NYSTATIN
     Dosage: 100000 IU/ML, 4X/DAY
     Route: 048
  8. FLEXERIL [Concomitant]
     Active Substance: CYCLOBENZAPRINE HYDROCHLORIDE
     Indication: PAIN
     Dosage: 10 MG, AS NEEDED (EVERY NIGHT AT BEDTIME)
     Route: 048
  9. OMEPRAZOLE. [Concomitant]
     Active Substance: OMEPRAZOLE
     Dosage: 20 MG, 2X/DAY
  10. LIDOCAINE. [Concomitant]
     Active Substance: LIDOCAINE
     Indication: PAIN
     Dosage: UNK UNK, AS NEEDED
  11. PENLAC [Concomitant]
     Active Substance: CICLOPIROX
     Dosage: UNK UNK, DAILY
  12. SYNTHROID [Concomitant]
     Active Substance: LEVOTHYROXINE SODIUM
     Dosage: 88 UG, DAILY
  13. SIMVASTATIN. [Concomitant]
     Active Substance: SIMVASTATIN
     Dosage: 40 MG, UNK
  14. NORTRIPTYLINE HCL [Concomitant]
     Active Substance: NORTRIPTYLINE HYDROCHLORIDE
     Dosage: 25 MG, 1X/DAY (AT BEDTIME)
  15. MECLIZINE HCL [Concomitant]
     Active Substance: MECLIZINE HYDROCHLORIDE
     Indication: DIZZINESS
     Dosage: 25 MG, AS NEEDED (Q8HR)
  16. VITAMIN D [Concomitant]
     Active Substance: CHOLECALCIFEROL
     Dosage: 2000 UNK, 2X/DAY
     Route: 048
  17. BENADRYL [Concomitant]
     Active Substance: DIPHENHYDRAMINE HYDROCHLORIDE
     Indication: PRURITUS
     Dosage: 25 MG, AS NEEDED (EVERY NIGHT)
     Route: 048
  18. CELEBREX [Suspect]
     Active Substance: CELECOXIB
     Indication: ARTHRITIS
  19. CELEBREX [Suspect]
     Active Substance: CELECOXIB
     Indication: OSTEOARTHRITIS
  20. NORVASC [Concomitant]
     Active Substance: AMLODIPINE BESYLATE
     Dosage: 10 MG, 1X/DAY (AT BEDTIME)
  21. ZYRTEC [Concomitant]
     Active Substance: CETIRIZINE HYDROCHLORIDE
     Dosage: 10 MG, DAILY
  22. TYLENOL [Concomitant]
     Active Substance: ACETAMINOPHEN
     Dosage: 100 MG, AS NEEDED (2 AT BEDTIME)
  23. FLEXERIL [Concomitant]
     Active Substance: CYCLOBENZAPRINE HYDROCHLORIDE
     Indication: MUSCLE SPASMS
     Dosage: 5 MG, AS NEEDED (THREE TIMES A DAY)
     Route: 048
  24. CELEBREX [Suspect]
     Active Substance: CELECOXIB
     Indication: POST LAMINECTOMY SYNDROME
     Dosage: 200 MG, 2X/DAY
     Route: 048
     Dates: start: 1997
  25. VITAMIN D3 [Concomitant]
     Active Substance: CHOLECALCIFEROL
     Dosage: 2000 IU, DAILY
  26. NIGHT LUBRICANT [Concomitant]
     Dosage: UNK UNK, 1X/DAY (RT AND LF EYE AT BED TIME
  27. FLAXSEED [Concomitant]
     Active Substance: FLAX SEED
     Dosage: 1000 MG, DAILY
  28. LIDODERM [Concomitant]
     Active Substance: LIDOCAINE
     Dosage: UNK UNK, AS NEEDED APPLY ONE TO AFFECTED AREA DAILY)
  29. PLAQUENIL [Concomitant]
     Active Substance: HYDROXYCHLOROQUINE SULFATE
     Dosage: 200 MG, 2X/DAY
  30. NORVASC [Concomitant]
     Active Substance: AMLODIPINE BESYLATE
     Dosage: 10 MG, 2X/DAY
     Route: 048
  31. DIMETAPP COLD + ALLERGY [Concomitant]
     Dosage: 15ML, 2X/DAY
  32. VITAMIN A [Concomitant]
     Active Substance: VITAMIN A
     Dosage: 8000 IU, UNK
  33. CICLOPIROX. [Concomitant]
     Active Substance: CICLOPIROX
     Dosage: UNK
  34. DYAZIDE [Concomitant]
     Active Substance: HYDROCHLOROTHIAZIDE\TRIAMTERENE
     Dosage: 25 MG, DAILY
  35. PRILOSEC [Concomitant]
     Active Substance: OMEPRAZOLE MAGNESIUM
     Dosage: 20 MG, 2X/DAY
  36. SIMVASTATIN. [Concomitant]
     Active Substance: SIMVASTATIN
     Dosage: 20 MG, DAILY

REACTIONS (15)
  - Dry eye [Recovering/Resolving]
  - Sleep apnoea syndrome [Unknown]
  - Head injury [Unknown]
  - Speech disorder [Unknown]
  - Arthropathy [Unknown]
  - Asthenia [Unknown]
  - Insomnia [Unknown]
  - Cataract [Unknown]
  - Dyspepsia [Unknown]
  - Blindness [Unknown]
  - Product use in unapproved indication [Unknown]
  - Eye pain [Unknown]
  - Ataxia [Unknown]
  - Pain [Unknown]
  - Arthralgia [Unknown]
